FAERS Safety Report 7705939-7 (Version None)
Quarter: 2011Q3

REPORT INFORMATION
  Report Type: 
  Country: None (occurrence: None)
  Receive Date: 20110824
  Receipt Date: 20110816
  Transmission Date: 20111222
  Serious: Yes (Other)
  Sender: FDA-Public Use
  Company Number: GB-CUBIST-2011S1000539

PATIENT
  Age: 74 Year
  Sex: Male

DRUGS (1)
  1. CUBICIN [Suspect]
     Indication: ENDOCARDITIS
     Route: 065
     Dates: start: 20110725

REACTIONS (5)
  - OSTEOMYELITIS [None]
  - ENDOCARDITIS [None]
  - DISEASE PROGRESSION [None]
  - BACTERAEMIA [None]
  - DRUG RESISTANCE [None]
